FAERS Safety Report 23100745 (Version 2)
Quarter: 2023Q4

REPORT INFORMATION
  Report Type: Report from Study
  Country: CN (occurrence: CN)
  Receive Date: 20231024
  Receipt Date: 20231031
  Transmission Date: 20240110
  Serious: Yes (Death)
  Sender: FDA-Public Use
  Company Number: CN-DSJP-DSJ-2023-143408

PATIENT
  Age: 70 Year
  Sex: Female
  Weight: 55 kg

DRUGS (8)
  1. EDOXABAN [Suspect]
     Active Substance: EDOXABAN
     Indication: Atrial fibrillation
     Dosage: 30 MG, QD
     Route: 065
     Dates: start: 20220211, end: 202207
  2. RIVAROXABAN [Suspect]
     Active Substance: RIVAROXABAN
     Indication: Atrial fibrillation
     Dosage: 10 MG, ONCE
     Route: 048
  3. SHAKUBARTRIX VALSARTANA [Concomitant]
     Indication: Hypertension
     Dosage: 100 MG, BID
     Route: 048
     Dates: start: 20220208, end: 2022
  4. SHAKUBARTRIX VALSARTANA [Concomitant]
     Indication: Cardiac failure
  5. RESSA HAIR STATIN CALCIUM [Concomitant]
     Indication: Cardiac failure
     Dosage: 10 MG, ONCE
     Route: 048
     Dates: start: 20220208, end: 2022
  6. RESSA HAIR STATIN CALCIUM [Concomitant]
     Indication: Coronary artery disease
  7. BISOPROLOL [Concomitant]
     Active Substance: BISOPROLOL\BISOPROLOL FUMARATE
     Indication: Cardiac failure
     Dosage: 2.5 MG, ONCE
     Route: 048
     Dates: start: 20220208, end: 2022
  8. DIGOXIN [Concomitant]
     Active Substance: DIGOXIN
     Indication: Cardiac failure
     Dosage: 0.125 MG, ONCE
     Route: 048
     Dates: start: 20220208, end: 2022

REACTIONS (1)
  - Death [Fatal]

NARRATIVE: CASE EVENT DATE: 20220101
